FAERS Safety Report 4349201-1 (Version None)
Quarter: 2004Q2

REPORT INFORMATION
  Report Type: 
  Country: None (occurrence: None)
  Receive Date: 20040428
  Receipt Date: 20021105
  Transmission Date: 20050107
  Serious: Yes (Hospitalization)
  Sender: FDA-Public Use
  Company Number: AU-ROCHE-324814

PATIENT
  Age: 50 Year
  Sex: Female
  Weight: 66.5 kg

DRUGS (21)
  1. DACLIZUMAB [Suspect]
     Route: 042
     Dates: start: 20020921, end: 20020921
  2. DACLIZUMAB [Suspect]
     Route: 042
     Dates: start: 20021005, end: 20021118
  3. MYCOPHENOLATE MOFETIL [Suspect]
     Route: 048
     Dates: start: 20020921
  4. CYCLOSPORINE [Suspect]
     Route: 065
     Dates: start: 20020921
  5. PREDNISOLONE [Suspect]
     Route: 065
     Dates: start: 20020923
  6. THYROXINE [Concomitant]
     Dosage: STARTED PRE-TRANSPLANT.
  7. PANTOPRAZOLE [Concomitant]
     Dates: start: 20020922
  8. GANCICLOVIR [Concomitant]
     Route: 042
     Dates: start: 20030109, end: 20030203
  9. NIFEDIPINE [Concomitant]
     Dates: start: 20021006
  10. ATENOLOL [Concomitant]
     Dates: start: 20021008
  11. ATORVASTATIN [Concomitant]
     Dosage: STARTED PRE-TRANSPLANT.
  12. FUROSEMIDE [Concomitant]
     Dates: start: 20020920
  13. TEMAZEPAM [Concomitant]
     Dates: start: 20020921
  14. COVERSYL [Concomitant]
     Dates: start: 20021128
  15. FLUCLOXACILLIN [Concomitant]
     Dates: start: 20030204
  16. ARANESP [Concomitant]
     Dates: start: 20021202
  17. GANCICLOVIR [Concomitant]
     Route: 048
     Dates: start: 20030204
  18. GANCICLOVIR [Concomitant]
     Route: 065
     Dates: start: 20020903
  19. ACETAMINOPHEN [Concomitant]
     Dosage: VARIABLE DOSE
     Dates: start: 20030105, end: 20030120
  20. AMPHOTERICIN LOZENGES [Concomitant]
     Dates: start: 20020921
  21. PERINDOPRIL [Concomitant]
     Dates: start: 20021128

REACTIONS (11)
  - BACK PAIN [None]
  - CONSTIPATION [None]
  - CYTOMEGALOVIRUS INFECTION [None]
  - GASTROENTERITIS [None]
  - HEADACHE [None]
  - HEPATOMEGALY [None]
  - LETHARGY [None]
  - OESOPHAGEAL INFECTION [None]
  - PARATHYROID TUMOUR BENIGN [None]
  - PYREXIA [None]
  - RESPIRATORY TRACT INFECTION [None]
